FAERS Safety Report 13365150 (Version 9)
Quarter: 2021Q3

REPORT INFORMATION
  Report Type: Report from Study
  Country: JP (occurrence: JP)
  Receive Date: 20170323
  Receipt Date: 20210909
  Transmission Date: 20211014
  Serious: Yes (Hospitalization, Other)
  Sender: FDA-Public Use
  Company Number: JP-MYLANLABS-2012S1015004

PATIENT
  Age: 33 Year
  Sex: Male
  Weight: 35.9 kg

DRUGS (54)
  1. NICYSTAGON CAP. 50MG [Suspect]
     Active Substance: CYSTEAMINE
     Dosage: 250 MG, QID
     Route: 048
     Dates: start: 20171213, end: 20190618
  2. NICYSTAGON CAP. 50MG [Suspect]
     Active Substance: CYSTEAMINE
     Dosage: 450 MG, QID
     Route: 048
     Dates: start: 20200923
  3. LANTUS [Concomitant]
     Active Substance: INSULIN GLARGINE
     Indication: DIABETES MELLITUS
     Dosage: 2 DF, HS
     Route: 058
     Dates: start: 2007
  4. THYRADIN?S [Concomitant]
     Active Substance: LEVOTHYROXINE
     Dosage: 75 ?G, UNK
     Route: 048
     Dates: start: 20150710, end: 20170202
  5. THYRADIN?S [Concomitant]
     Active Substance: LEVOTHYROXINE
     Dosage: 62.5 ?G, UNK
     Route: 048
     Dates: start: 20180221, end: 20180424
  6. THYRADIN?S [Concomitant]
     Active Substance: LEVOTHYROXINE
     Dosage: 100 MICROGRAM
     Route: 048
     Dates: start: 20180425
  7. RIONA [Concomitant]
     Active Substance: FERRIC CITRATE ANHYDROUS
     Indication: PRODUCT USED FOR UNKNOWN INDICATION
     Dosage: 750 MG, UNK
     Route: 048
     Dates: start: 20160105
  8. NIFEDIPINE. [Concomitant]
     Active Substance: NIFEDIPINE
     Dosage: 10 MILLIGRAM, QD
     Route: 048
  9. BILANOA [Concomitant]
     Active Substance: BILASTINE
     Indication: PRODUCT USED FOR UNKNOWN INDICATION
     Dosage: 20 MILLIGRAM
     Route: 048
  10. NICYSTAGON CAP. 50MG [Suspect]
     Active Substance: CYSTEAMINE
     Dosage: 200 MILLIGRAM, QID
     Route: 048
     Dates: start: 20120919
  11. NICYSTAGON CAP. 50MG [Suspect]
     Active Substance: CYSTEAMINE
     Dosage: 100 MILLIGRAM, QID
     Route: 048
     Dates: start: 20121113
  12. NICYSTAGON CAP. 50MG [Suspect]
     Active Substance: CYSTEAMINE
     Dosage: 300 MG, QID
     Route: 048
     Dates: start: 20190626, end: 20200324
  13. NICYSTAGON CAP. 50MG [Suspect]
     Active Substance: CYSTEAMINE
     Dosage: 350 MG, QID
     Route: 048
     Dates: start: 20200325, end: 20200922
  14. MECOBALAMIN [Suspect]
     Active Substance: METHYLCOBALAMIN
     Indication: PRODUCT USED FOR UNKNOWN INDICATION
     Dosage: UNK
     Route: 048
  15. ADETPHOS [Suspect]
     Active Substance: ADENOSINE TRIPHOSPHATE
     Indication: PRODUCT USED FOR UNKNOWN INDICATION
     Dosage: UNK
     Route: 048
  16. FEROTYM [Concomitant]
     Active Substance: FERROUS CITRATE\SODIUM
     Indication: PRODUCT USED FOR UNKNOWN INDICATION
     Dosage: 50 MG,QD
     Route: 048
     Dates: start: 2007
  17. DIOVAN [Concomitant]
     Active Substance: VALSARTAN
     Indication: CHRONIC KIDNEY DISEASE
     Dosage: 40 MG,QD
     Route: 048
     Dates: start: 2006
  18. BONOTEO [Concomitant]
     Active Substance: MINODRONIC ACID
     Indication: PRODUCT USED FOR UNKNOWN INDICATION
     Dosage: 50 MG, UNK
     Route: 048
  19. MYSLEE [Concomitant]
     Active Substance: ZOLPIDEM TARTRATE
     Indication: PRODUCT USED FOR UNKNOWN INDICATION
     Dosage: 10 MILLIGRAM, QD
     Route: 048
  20. CALCIUM LACTATE [Concomitant]
     Active Substance: CALCIUM LACTATE
     Indication: PRODUCT USED FOR UNKNOWN INDICATION
     Dosage: 2 GRAM, QD
     Route: 048
  21. NICYSTAGON CAP. 50MG [Suspect]
     Active Substance: CYSTEAMINE
     Dosage: 200 MILLIGRAM, QID
     Route: 048
     Dates: start: 20120724
  22. FEBURIC [Concomitant]
     Active Substance: FEBUXOSTAT
     Indication: CHRONIC KIDNEY DISEASE
     Dosage: 10 MILLIGRAM, QD
     Route: 048
     Dates: start: 2001
  23. ALPHA D [Concomitant]
     Indication: PRODUCT USED FOR UNKNOWN INDICATION
     Dosage: 0.25 MICROGRAM, QD
     Route: 048
     Dates: start: 2010
  24. THYRADIN?S [Concomitant]
     Active Substance: LEVOTHYROXINE
     Indication: CHRONIC KIDNEY DISEASE
     Dosage: 75 MICROGRAM, QD
     Route: 048
  25. THYRADIN?S [Concomitant]
     Active Substance: LEVOTHYROXINE
     Dosage: 75 ?G, UNK
     Route: 048
     Dates: start: 20170208
  26. ALFAROL [Concomitant]
     Active Substance: ALFACALCIDOL
     Indication: PRODUCT USED FOR UNKNOWN INDICATION
     Dosage: 0.25 ?G, UNK
     Route: 048
  27. FLUMETHOLON [Concomitant]
     Active Substance: FLUOROMETHOLONE
     Indication: PRODUCT USED FOR UNKNOWN INDICATION
     Dosage: UNK
     Route: 047
     Dates: start: 20161214
  28. GATIFLO [Concomitant]
     Active Substance: GATIFLOXACIN
     Indication: PRODUCT USED FOR UNKNOWN INDICATION
     Dosage: UNK
     Route: 047
     Dates: start: 20200401
  29. NEORAL [Concomitant]
     Active Substance: CYCLOSPORINE
     Indication: PRODUCT USED FOR UNKNOWN INDICATION
     Dosage: 50 MG,BID
     Route: 048
     Dates: start: 2000
  30. CALBLOCK [Concomitant]
     Active Substance: AZELNIDIPINE
     Indication: PRODUCT USED FOR UNKNOWN INDICATION
     Dosage: 16 MG,QD
     Route: 048
     Dates: start: 201204
  31. NITROGLYCERIN. [Concomitant]
     Active Substance: NITROGLYCERIN
     Indication: CHRONIC KIDNEY DISEASE
     Dosage: 5 MILLIGRAM, BID
     Route: 062
     Dates: start: 2000
  32. NITROGLYCERIN. [Concomitant]
     Active Substance: NITROGLYCERIN
     Dosage: 5 MILLIGRAM, UNK
  33. MILLIS [Concomitant]
     Indication: PRODUCT USED FOR UNKNOWN INDICATION
     Dosage: 5 MG, UNK
     Route: 062
  34. VEGAMOX [Concomitant]
     Active Substance: MOXIFLOXACIN HYDROCHLORIDE
     Indication: PRODUCT USED FOR UNKNOWN INDICATION
     Dosage: UNK
     Route: 047
     Dates: start: 20161214, end: 20200330
  35. MIYA?BM [Concomitant]
     Active Substance: CLOSTRIDIUM BUTYRICUM SPORES STRAIN M-55
     Indication: PRODUCT USED FOR UNKNOWN INDICATION
     Dosage: 3 GRAM
     Route: 048
     Dates: start: 20200122, end: 20200623
  36. MIYA?BM [Concomitant]
     Active Substance: CLOSTRIDIUM BUTYRICUM SPORES STRAIN M-55
     Dosage: 6 GRAM
     Route: 048
     Dates: start: 20200624
  37. NICYSTAGON CAP. 50MG [Suspect]
     Active Substance: CYSTEAMINE
     Dosage: 200 MG, QID
     Route: 048
     Dates: start: 20150306, end: 20171212
  38. NOVOLIN R [Concomitant]
     Active Substance: INSULIN HUMAN
     Indication: DIABETES MELLITUS
     Dosage: 20 DOSAGE FORM, QD
     Route: 058
     Dates: start: 2007
  39. ZETIA [Concomitant]
     Active Substance: EZETIMIBE
     Indication: CHRONIC KIDNEY DISEASE
     Dosage: 10 MG,QD
     Route: 048
     Dates: start: 2010
  40. THYRADIN?S [Concomitant]
     Active Substance: LEVOTHYROXINE
     Dosage: 100 ?G, UNK
     Route: 048
     Dates: start: 20170208, end: 20171010
  41. FRANDOL [Concomitant]
     Active Substance: ISOSORBIDE DINITRATE
     Indication: PRODUCT USED FOR UNKNOWN INDICATION
     Dosage: 40 MG, UNK
     Route: 062
  42. MUCOSTA [Concomitant]
     Active Substance: REBAMIPIDE
     Indication: PRODUCT USED FOR UNKNOWN INDICATION
     Dosage: UNK
     Route: 047
     Dates: start: 20161214
  43. TRANSAMIN [Concomitant]
     Active Substance: TRANEXAMIC ACID
     Indication: PRODUCT USED FOR UNKNOWN INDICATION
     Dosage: 750 MILLIGRAM
     Route: 048
  44. PREDONINE [Concomitant]
     Active Substance: PREDNISOLONE
     Dosage: 5 MG, UNK
     Route: 048
  45. RIONA [Concomitant]
     Active Substance: FERRIC CITRATE ANHYDROUS
     Dosage: 750 MILLIGRAM, QD
     Route: 048
  46. ECOLICIN                           /00562601/ [Concomitant]
     Indication: PRODUCT USED FOR UNKNOWN INDICATION
     Dosage: UNK
     Route: 047
  47. NICYSTAGON CAP. 50MG [Suspect]
     Active Substance: CYSTEAMINE
     Indication: CYSTINOSIS
     Dosage: 450 MILLIGRAM, QID
     Route: 048
     Dates: start: 20120707, end: 20120717
  48. BREDININ [Concomitant]
     Active Substance: MIZORIBINE
     Indication: PRODUCT USED FOR UNKNOWN INDICATION
     Dosage: 150 MG,QD
     Route: 048
     Dates: start: 199404
  49. NOVOLIN R [Concomitant]
     Active Substance: INSULIN HUMAN
     Dosage: APPROPRIATELY INCREASE OR DECREASE ACCORDING TO BLOOD SUGAR LEVEL
     Route: 058
     Dates: end: 201902
  50. THYRADIN?S [Concomitant]
     Active Substance: LEVOTHYROXINE
     Dosage: 75 ?G, UNK
     Route: 048
     Dates: start: 20171011, end: 20180220
  51. PREDONINE [Concomitant]
     Active Substance: PREDNISOLONE
     Indication: RENAL TRANSPLANT
     Dosage: 10 MILLIGRAM, QD
     Route: 048
     Dates: start: 199404
  52. FEBURIC [Concomitant]
     Active Substance: FEBUXOSTAT
     Dosage: 10 MILLIGRAM, QD
     Route: 048
  53. LANTUS [Concomitant]
     Active Substance: INSULIN GLARGINE
     Dosage: ??
     Route: 058
  54. NIFEDIPINE. [Concomitant]
     Active Substance: NIFEDIPINE
     Indication: PRODUCT USED FOR UNKNOWN INDICATION
     Dosage: 20 MG, UNK
     Route: 048

REACTIONS (10)
  - Pseudomembranous colitis [Recovering/Resolving]
  - Hyperphosphataemia [Recovered/Resolved]
  - Decreased appetite [Recovered/Resolved]
  - Fall [Unknown]
  - Keratitis bacterial [Not Recovered/Not Resolved]
  - Shunt occlusion [Recovered/Resolved]
  - Transaminases increased [Recovered/Resolved]
  - Shunt occlusion [Recovered/Resolved]
  - Colonic fistula [Recovering/Resolving]
  - Fracture [Not Recovered/Not Resolved]

NARRATIVE: CASE EVENT DATE: 201207
